FAERS Safety Report 6589073-8 (Version None)
Quarter: 2010Q1

REPORT INFORMATION
  Report Type: 
  Country: None (occurrence: None)
  Receive Date: 20100218
  Receipt Date: 20100211
  Transmission Date: 20100710
  Serious: No
  Sender: FDA-Public Use
  Company Number: US-B.I. PHARMACEUTICALS,INC./RIDGEFIELD-2010-BP-01864BP

PATIENT
  Age: 70 Year
  Sex: Female

DRUGS (7)
  1. SPIRIVA [Suspect]
     Indication: DYSPNOEA
     Dosage: 18 MCG
     Route: 055
     Dates: start: 20100101
  2. ZYRTEC [Concomitant]
     Indication: MULTIPLE ALLERGIES
  3. COREG [Concomitant]
     Indication: CARDIAC FAILURE CONGESTIVE
  4. LISINOPRIL [Concomitant]
     Indication: CARDIAC FAILURE CONGESTIVE
  5. FOLIC ACID [Concomitant]
     Indication: PROPHYLAXIS
  6. MULTI-VITAMIN [Concomitant]
     Indication: PROPHYLAXIS
  7. CALCIUM [Concomitant]
     Indication: PROPHYLAXIS

REACTIONS (2)
  - DRY MOUTH [None]
  - DYSPHONIA [None]
